FAERS Safety Report 8612678-7 (Version None)
Quarter: 2012Q3

REPORT INFORMATION
  Report Type: 
  Country: None (occurrence: None)
  Receive Date: 20120822
  Receipt Date: 20120117
  Transmission Date: 20120928
  Serious: No
  Sender: FDA-Public Use
  Company Number: US-ASTRAZENECA-2011SE58393

PATIENT
  Age: 65 Year
  Sex: Female
  Weight: 64 kg

DRUGS (1)
  1. SYMBICORT [Suspect]
     Dosage: TWO TIMES A DAY
     Route: 055

REACTIONS (3)
  - CARDIAC DISORDER [None]
  - DRUG DOSE OMISSION [None]
  - RENAL DISORDER [None]
